FAERS Safety Report 11211886 (Version 1)
Quarter: 2015Q2

REPORT INFORMATION
  Report Type: Spontaneous
  Country: US (occurrence: US)
  Receive Date: 20150623
  Receipt Date: 20150623
  Transmission Date: 20150821
  Serious: Yes (Life-Threatening, Hospitalization, Other)
  Sender: FDA-Public Use
  Company Number: US-MYLANLABS-2015M1020148

PATIENT

DRUGS (1)
  1. METOPROLOL TARTRATE. [Suspect]
     Active Substance: METOPROLOL TARTRATE
     Indication: PRODUCT USED FOR UNKNOWN INDICATION
     Dosage: INGESTED IN INTENTIONAL OVERDOSE
     Route: 048

REACTIONS (9)
  - Cardiogenic shock [Recovered/Resolved]
  - Hypomagnesaemia [Recovered/Resolved]
  - Hyperhidrosis [Unknown]
  - Cyanosis [Recovered/Resolved]
  - Torsade de pointes [Recovered/Resolved]
  - Hypokalaemia [Recovered/Resolved]
  - Vomiting [Recovered/Resolved]
  - Mental status changes [Recovered/Resolved]
  - Intentional overdose [Recovered/Resolved]
